FAERS Safety Report 10408486 (Version 1)
Quarter: 2014Q3

REPORT INFORMATION
  Report Type: Spontaneous
  Country: US (occurrence: None)
  Receive Date: 20140825
  Receipt Date: 20140825
  Transmission Date: 20150326
  Serious: Yes (Life-Threatening, Hospitalization, Other)
  Sender: FDA-Public Use
  Company Number: None

PATIENT
  Age: 49 Year
  Sex: Male
  Weight: 74.84 kg

DRUGS (3)
  1. WARFARIN [Suspect]
     Active Substance: WARFARIN
  2. ASPIRIN. [Concomitant]
     Active Substance: ASPIRIN
  3. LOVENOX [Suspect]
     Active Substance: ENOXAPARIN SODIUM

REACTIONS (4)
  - International normalised ratio increased [None]
  - Drug administration error [None]
  - Gastrointestinal haemorrhage [None]
  - Coagulation time prolonged [None]

NARRATIVE: CASE EVENT DATE: 20140821
